FAERS Safety Report 4964465-9 (Version None)
Quarter: 2006Q2

REPORT INFORMATION
  Report Type: 
  Country: None (occurrence: None)
  Receive Date: 20060406
  Receipt Date: 20060330
  Transmission Date: 20061013
  Serious: Yes (Hospitalization)
  Sender: FDA-Public Use
  Company Number: FR-AVENTIS-200611192FR

PATIENT
  Age: 39 Year
  Sex: Male
  Weight: 90 kg

DRUGS (3)
  1. DOLIPRANE [Suspect]
     Indication: NASOPHARYNGITIS
     Route: 048
     Dates: start: 20060101, end: 20060103
  2. KETEK [Suspect]
     Indication: NASOPHARYNGITIS
     Route: 048
     Dates: start: 20051216, end: 20051221
  3. IBUPROFEN [Suspect]
     Indication: NASOPHARYNGITIS
     Route: 048
     Dates: start: 20060101, end: 20060103

REACTIONS (3)
  - ABDOMINAL PAIN [None]
  - CYTOLYTIC HEPATITIS [None]
  - HEPATITIS [None]
